FAERS Safety Report 7628228-8 (Version None)
Quarter: 2011Q3

REPORT INFORMATION
  Report Type: 
  Country: None (occurrence: None)
  Receive Date: 20110720
  Receipt Date: 20110720
  Transmission Date: 20111222
  Serious: Yes (Other)
  Sender: FDA-Public Use
  Company Number: None

PATIENT
  Sex: Male
  Weight: 82.5547 kg

DRUGS (2)
  1. BUPROPION HCL [Suspect]
     Indication: BIPOLAR I DISORDER
     Dosage: 300 MG DAILY ORAL
     Route: 048
     Dates: start: 20071103, end: 20071203
  2. BUPROPRION HCL [Suspect]
     Indication: BIPOLAR I DISORDER
     Dosage: 300 MG DAILY ORAL
     Route: 048
     Dates: start: 20071204, end: 20071220

REACTIONS (4)
  - AGGRESSION [None]
  - IRRITABILITY [None]
  - LETHARGY [None]
  - PRODUCT SUBSTITUTION ISSUE [None]
